FAERS Safety Report 8890949 (Version 2)
Quarter: 2013Q1

REPORT INFORMATION
  Report Type: Spontaneous
  Country: BR (occurrence: BR)
  Receive Date: 20121107
  Receipt Date: 20130117
  Transmission Date: 20140127
  Serious: Yes (Death, Other)
  Sender: FDA-Public Use
  Company Number: PHHY2012BR102040

PATIENT
  Age: 34 Year
  Sex: Female
  Weight: 80 kg

DRUGS (2)
  1. TRILEPTAL [Suspect]
     Indication: CONVULSION
     Dosage: 300 MG (4 TABLETS A DAY)
     Route: 048
  2. TRILEPTAL [Suspect]
     Dosage: 600 MG (2 TABLETS A DAY)
     Route: 048

REACTIONS (2)
  - Death [Fatal]
  - Convulsion [Unknown]
